FAERS Safety Report 9777015 (Version 1)
Quarter: 2013Q4

REPORT INFORMATION
  Report Type: Spontaneous
  Country: NL (occurrence: NL)
  Receive Date: 20131221
  Receipt Date: 20131221
  Transmission Date: 20140711
  Serious: Yes (Other)
  Sender: FDA-Public Use
  Company Number: NL-AMGEN-NLDSP2013088631

PATIENT
  Age: 81 Year
  Sex: Female

DRUGS (7)
  1. XGEVA [Suspect]
     Indication: PROPHYLAXIS
     Dosage: 120 UNK, Q4WK
     Route: 058
     Dates: start: 20121217
  2. PAROXETIN                          /00830801/ [Concomitant]
     Dosage: 20 MG, UNK
  3. PREDNISON [Concomitant]
     Dosage: 5 MG, UNK
  4. BUMETANIDE [Concomitant]
     Dosage: 1 MG, UNK
  5. DIVISUN [Concomitant]
     Dosage: 800 IE
  6. PANTAZOL [Concomitant]
     Dosage: 40 MG, UNK
  7. EXEMESTAAN [Concomitant]
     Dosage: 25 MG, UNK

REACTIONS (1)
  - Pulpitis dental [Not Recovered/Not Resolved]
